FAERS Safety Report 7616672-4 (Version None)
Quarter: 2011Q3

REPORT INFORMATION
  Report Type: 
  Country: None (occurrence: None)
  Receive Date: 20110717
  Receipt Date: 20110705
  Transmission Date: 20111222
  Serious: Yes (Other)
  Sender: FDA-Public Use
  Company Number: PHHY2011US60028

PATIENT
  Sex: Male
  Weight: 80.45 kg

DRUGS (5)
  1. PERCOCET [Concomitant]
  2. COMPAZINE [Concomitant]
  3. ATIVAN [Concomitant]
  4. GLEEVEC [Suspect]
     Indication: CHRONIC MYELOID LEUKAEMIA
     Dosage: 400 MG, QD
     Route: 048
     Dates: start: 20110331
  5. ALLOPURINOL [Concomitant]
     Dosage: 300 MG, DAILY
     Route: 048

REACTIONS (6)
  - INCORRECT DOSE ADMINISTERED [None]
  - WHITE BLOOD CELL COUNT INCREASED [None]
  - HAEMOGLOBIN DECREASED [None]
  - RED BLOOD CELL COUNT DECREASED [None]
  - DIZZINESS [None]
  - PLATELET COUNT DECREASED [None]
